FAERS Safety Report 15888072 (Version 6)
Quarter: 2022Q4

REPORT INFORMATION
  Report Type: Spontaneous
  Country: US (occurrence: US)
  Receive Date: 20190130
  Receipt Date: 20221028
  Transmission Date: 20230112
  Serious: Yes (Death, Hospitalization, Other)
  Sender: FDA-Public Use
  Company Number: US-PFIZER INC-2019044419

PATIENT
  Age: 88 Year
  Sex: Male

DRUGS (1)
  1. XELJANZ [Suspect]
     Active Substance: TOFACITINIB CITRATE
     Indication: Colitis ulcerative
     Dosage: 10 MG, 2X/DAY
     Route: 048
     Dates: start: 20190128, end: 20190320

REACTIONS (14)
  - Acute respiratory failure [Fatal]
  - Pneumonia streptococcal [Fatal]
  - Pneumonia [Fatal]
  - Tuberculosis [Fatal]
  - Sepsis [Unknown]
  - Pyrexia [Unknown]
  - Cardiac failure acute [Unknown]
  - Aortic arteriosclerosis [Unknown]
  - Aortic disorder [Unknown]
  - Essential hypertension [Unknown]
  - Illness [Unknown]
  - Fatigue [Unknown]
  - Depression [Unknown]
  - Feeling of despair [Unknown]

NARRATIVE: CASE EVENT DATE: 20190328
